FAERS Safety Report 5114857-2 (Version None)
Quarter: 2006Q3

REPORT INFORMATION
  Report Type: 
  Country: None (occurrence: None)
  Receive Date: 20060926
  Receipt Date: 20060705
  Transmission Date: 20061208
  Serious: Yes (Other)
  Sender: FDA-Public Use
  Company Number: US-BAYER-200612847BCC

PATIENT
  Age: 70 Year
  Sex: Female
  Weight: 84 kg

DRUGS (3)
  1. PHILLIPS LIQUID GELS [Suspect]
     Indication: BOWEL MOVEMENT IRREGULARITY
     Route: 048
     Dates: start: 20060703
  2. MYCARDIS [Concomitant]
  3. SINGULAIR [Concomitant]

REACTIONS (1)
  - BLOOD PRESSURE INCREASED [None]
